FAERS Safety Report 9468398 (Version 2)
Quarter: 2013Q3

REPORT INFORMATION
  Report Type: Spontaneous
  Country: ES (occurrence: ES)
  Receive Date: 20130821
  Receipt Date: 20130906
  Transmission Date: 20140515
  Serious: Yes (Other)
  Sender: FDA-Public Use
  Company Number: PHHY2013ES089308

PATIENT
  Age: 55 Year
  Sex: Male

DRUGS (3)
  1. RIBAVIRIN SANDOZ [Suspect]
     Indication: HEPATITIS C ANTIBODY POSITIVE
     Dosage: 600 MG, DAILY
     Route: 048
     Dates: start: 201304, end: 20130709
  2. INCIVO [Concomitant]
     Indication: HEPATITIS C ANTIBODY POSITIVE
     Dosage: 2250 G
     Route: 048
     Dates: start: 201304, end: 20130704
  3. PEGINTRON [Concomitant]
     Indication: HEPATITIS C ANTIBODY POSITIVE
     Dosage: 120 UG
     Route: 058
     Dates: start: 201304, end: 20130709

REACTIONS (5)
  - Skin exfoliation [Recovering/Resolving]
  - Pyrexia [Recovering/Resolving]
  - Pruritus [Recovering/Resolving]
  - Oedema peripheral [Recovering/Resolving]
  - Rash maculo-papular [Recovering/Resolving]
